FAERS Safety Report 14384721 (Version 2)
Quarter: 2018Q1

REPORT INFORMATION
  Report Type: Report from Study
  Country: GB (occurrence: GB)
  Receive Date: 20180115
  Receipt Date: 20180117
  Transmission Date: 20180509
  Serious: Yes (Hospitalization)
  Sender: FDA-Public Use
  Company Number: GB-JNJFOC-20170902113

PATIENT
  Age: 62 Year
  Sex: Male
  Weight: 73.7 kg

DRUGS (11)
  1. PREDNISOLONE. [Concomitant]
     Active Substance: PREDNISOLONE
     Indication: MOUTH ULCERATION
     Route: 065
     Dates: start: 20171020, end: 20171127
  2. IBRUTINIB [Suspect]
     Active Substance: IBRUTINIB
     Indication: CHRONIC LYMPHOCYTIC LEUKAEMIA
     Route: 048
     Dates: start: 20170925, end: 20171009
  3. VENETOCLAX. [Suspect]
     Active Substance: VENETOCLAX
     Indication: CHRONIC LYMPHOCYTIC LEUKAEMIA
     Route: 048
     Dates: start: 20170925
  4. IBRUTINIB [Suspect]
     Active Substance: IBRUTINIB
     Indication: CHRONIC LYMPHOCYTIC LEUKAEMIA
     Route: 048
     Dates: start: 20170131, end: 20170825
  5. OMEPRAZOLE. [Concomitant]
     Active Substance: OMEPRAZOLE
     Indication: MOUTH ULCERATION
     Route: 065
     Dates: start: 20171021
  6. IBRUTINIB [Suspect]
     Active Substance: IBRUTINIB
     Indication: CHRONIC LYMPHOCYTIC LEUKAEMIA
     Route: 048
     Dates: start: 20171009
  7. PARACETAMOL [Concomitant]
     Active Substance: ACETAMINOPHEN
     Indication: MOUTH ULCERATION
     Route: 065
     Dates: start: 20171020
  8. OXETACAINE [Concomitant]
     Active Substance: OXETHAZAINE
     Indication: PEMPHIGUS
     Route: 065
     Dates: start: 20171020
  9. VENETOCLAX. [Suspect]
     Active Substance: VENETOCLAX
     Indication: CHRONIC LYMPHOCYTIC LEUKAEMIA
     Route: 048
     Dates: start: 20170327, end: 20171229
  10. CO-AMOXICLAV [Concomitant]
     Active Substance: AMOXICILLIN\CLAVULANIC ACID
     Indication: MOUTH ULCERATION
     Dosage: 500/125
     Route: 065
     Dates: start: 20171020
  11. NYSTATIN. [Concomitant]
     Active Substance: NYSTATIN
     Indication: PEMPHIGUS
     Route: 065
     Dates: start: 20171020

REACTIONS (1)
  - Pemphigus [Recovered/Resolved with Sequelae]

NARRATIVE: CASE EVENT DATE: 20170901
